FAERS Safety Report 25374730 (Version 1)
Quarter: 2025Q2

REPORT INFORMATION
  Report Type: Spontaneous
  Country: US (occurrence: US)
  Receive Date: 20250529
  Receipt Date: 20250529
  Transmission Date: 20250716
  Serious: No
  Sender: BAYER HEALTHCARE LLC
  Company Number: US-BAYER-2025A072001

PATIENT
  Age: 77 Year
  Sex: Female

DRUGS (4)
  1. CLARITIN [Suspect]
     Active Substance: LORATADINE
     Indication: Hypersensitivity
     Route: 048
     Dates: start: 20250528, end: 20250528
  2. CLARITIN [Suspect]
     Active Substance: LORATADINE
     Indication: Throat irritation
  3. CLARITIN [Suspect]
     Active Substance: LORATADINE
     Indication: Rhinorrhoea
  4. CLARITIN [Suspect]
     Active Substance: LORATADINE
     Indication: Lacrimation increased

REACTIONS (1)
  - Therapeutic response shortened [Recovered/Resolved with Sequelae]
